FAERS Safety Report 17662026 (Version 2)
Quarter: 2020Q2

REPORT INFORMATION
  Report Type: Spontaneous
  Country: DE (occurrence: DE)
  Receive Date: 20200413
  Receipt Date: 20200417
  Transmission Date: 20200713
  Serious: Yes (Other)
  Sender: FDA-Public Use
  Company Number: DE-BAYER-2020-059033

PATIENT

DRUGS (1)
  1. ULTRAVIST [Suspect]
     Active Substance: IOPROMIDE
     Dosage: UNK
     Route: 042
     Dates: start: 202003, end: 202003

REACTIONS (5)
  - Pharyngeal swelling [None]
  - Cold sweat [None]
  - Rash erythematous [None]
  - Autonomic neuropathy [None]
  - Pruritus [None]

NARRATIVE: CASE EVENT DATE: 202003
